FAERS Safety Report 9992439 (Version 1)
Quarter: 2014Q1

REPORT INFORMATION
  Report Type: Spontaneous
  Country: FR (occurrence: FR)
  Receive Date: 20140310
  Receipt Date: 20140310
  Transmission Date: 20141002
  Serious: Yes (Other)
  Sender: FDA-Public Use
  Company Number: FR-GLAXOSMITHKLINE-B0974272A

PATIENT
  Age: 46 Year
  Sex: Female

DRUGS (3)
  1. TYVERB [Suspect]
     Indication: HER-2 POSITIVE BREAST CANCER
     Dosage: 250MG UNKNOWN
     Route: 048
     Dates: start: 20131018
  2. XELODA [Suspect]
     Indication: HER-2 POSITIVE BREAST CANCER
     Route: 048
     Dates: start: 20131018, end: 201312
  3. XGEVA [Concomitant]
     Indication: PRODUCT USED FOR UNKNOWN INDICATION
     Dosage: 120MG MONTHLY
     Route: 058
     Dates: start: 20131018

REACTIONS (8)
  - Nausea [Recovered/Resolved]
  - Dizziness [Recovered/Resolved]
  - Headache [Recovered/Resolved]
  - Vomiting [Recovered/Resolved]
  - Fatigue [Unknown]
  - Quality of life decreased [Unknown]
  - Pain in extremity [Unknown]
  - Deep vein thrombosis [Unknown]
